FAERS Safety Report 12974962 (Version 1)
Quarter: 2016Q4

REPORT INFORMATION
  Report Type: Report from Study
  Country: IT (occurrence: IT)
  Receive Date: 20161125
  Receipt Date: 20161125
  Transmission Date: 20170207
  Serious: Yes (Other)
  Sender: FDA-Public Use
  Company Number: IT-ROCHE-1857760

PATIENT

DRUGS (8)
  1. 5-FLUOROURACIL [Suspect]
     Active Substance: FLUOROURACIL
     Dosage: CHRONO
     Route: 065
  2. OXALIPLATIN. [Suspect]
     Active Substance: OXALIPLATIN
     Dosage: CHRONO
     Route: 065
  3. OXALIPLATIN. [Suspect]
     Active Substance: OXALIPLATIN
     Indication: COLORECTAL CANCER
     Dosage: ON DAY 1,
     Route: 065
  4. 5-FLUOROURACIL [Suspect]
     Active Substance: FLUOROURACIL
     Indication: COLORECTAL CANCER
     Dosage: ON DAY 1 AND DAY 2, 22 HOUR-INFUSION OF?THE CYCLE WAS REPEATED EVERY 14
     Route: 065
  5. LEUCOVORIN. [Suspect]
     Active Substance: LEUCOVORIN
     Dosage: CHRONO
     Route: 065
  6. LEUCOVORIN. [Suspect]
     Active Substance: LEUCOVORIN
     Indication: COLORECTAL CANCER
     Dosage: FOLLOWED BY 2 HOUR-INFUSION OF ON DAY 1 AND DAY 2?THE CYCLE WAS REPEATED EVERY 14
     Route: 065
  7. CAPECITABINE. [Suspect]
     Active Substance: CAPECITABINE
     Indication: COLORECTAL CANCER
     Dosage: FOR 14 CONSECUTIVE DAYS
     Route: 065
  8. OXALIPLATIN. [Suspect]
     Active Substance: OXALIPLATIN
     Dosage: XELOX THERAPY: ON DAY 1
     Route: 065

REACTIONS (8)
  - Thrombocytopenia [Unknown]
  - Diarrhoea [Unknown]
  - Neutropenia [Unknown]
  - Anaemia [Unknown]
  - Nausea [Unknown]
  - Neuropathy peripheral [Unknown]
  - Mucosal inflammation [Unknown]
  - Leukopenia [Unknown]
